FAERS Safety Report 8234420-4 (Version None)
Quarter: 2012Q1

REPORT INFORMATION
  Report Type: 
  Country: None (occurrence: None)
  Receive Date: 20120326
  Receipt Date: 20120322
  Transmission Date: 20120608
  Serious: Yes (Hospitalization, Disabling)
  Sender: FDA-Public Use
  Company Number: IT-PFIZER INC-2012070666

PATIENT
  Age: 56 Year
  Sex: Male
  Weight: 98 kg

DRUGS (10)
  1. TESTOVIRON [Concomitant]
     Indication: FOLLICLE-STIMULATING HORMONE DEFICIENCY
     Dosage: UNK
     Dates: start: 20110524, end: 20110829
  2. INSULIN LISPRO [Concomitant]
     Indication: TYPE 2 DIABETES MELLITUS
     Dosage: UNK
     Route: 058
     Dates: start: 20000101
  3. PROTAMIN ZINC INSULIN [Concomitant]
     Indication: TYPE 2 DIABETES MELLITUS
     Dosage: UNK
     Route: 058
     Dates: start: 20000101
  4. METFORMIN [Concomitant]
     Indication: TYPE 2 DIABETES MELLITUS
     Dosage: UNK
     Route: 048
     Dates: start: 20000101
  5. VALSARTAN [Concomitant]
     Indication: HYPERTENSION
     Dosage: UNK
     Route: 048
     Dates: start: 20110111
  6. EZETIMIBE/SIMVASTATIN [Concomitant]
     Indication: LIPID METABOLISM DISORDER
     Dosage: UNK
     Route: 048
     Dates: start: 20091002
  7. TIROXINA [Concomitant]
     Dosage: UNK
     Route: 048
     Dates: start: 20081124
  8. ASPIRIN [Concomitant]
     Indication: HYPERTENSION
     Dosage: UNK
     Route: 048
     Dates: start: 20000101
  9. PEGVISOMANT [Suspect]
     Indication: ACROMEGALY
     Dosage: 10MG/DAY, 7 INJECTIONS WEEK
     Dates: start: 20091026, end: 20110829
  10. TESTOVIRON [Concomitant]
     Indication: LUTEINISING HORMONE DEFICIENCY

REACTIONS (1)
  - DIPLOPIA [None]
